FAERS Safety Report 5192608-3 (Version None)
Quarter: 2006Q4

REPORT INFORMATION
  Report Type: 
  Country: None (occurrence: None)
  Receive Date: 20061220
  Receipt Date: 20061206
  Transmission Date: 20070319
  Serious: Yes (Death, Hospitalization)
  Sender: FDA-Public Use
  Company Number: 2006MP001264

PATIENT
  Age: 76 Year
  Sex: Male
  Weight: 104.7809 kg

DRUGS (5)
  1. DACOGEN [Suspect]
     Indication: MYELODYSPLASTIC SYNDROME
     Dosage: SEE IMAGE
     Route: 042
     Dates: start: 20060828, end: 20061001
  2. DACOGEN [Suspect]
     Indication: MYELODYSPLASTIC SYNDROME
     Dosage: SEE IMAGE
     Route: 042
     Dates: start: 20061127, end: 20061129
  3. ZOFRAN [Concomitant]
  4. VALPROIC ACID [Concomitant]
  5. PREDNISONE TAB [Concomitant]

REACTIONS (6)
  - CEREBRAL HAEMATOMA [None]
  - HAEMORRHAGE INTRACRANIAL [None]
  - HYDROCEPHALUS [None]
  - LEUKAEMIA [None]
  - PLATELET COUNT DECREASED [None]
  - RESPIRATORY DISTRESS [None]
